FAERS Safety Report 4777891-8 (Version None)
Quarter: 2005Q3

REPORT INFORMATION
  Report Type: 
  Country: None (occurrence: None)
  Receive Date: 20050926
  Receipt Date: 20050914
  Transmission Date: 20060218
  Serious: Yes (Other)
  Sender: FDA-Public Use
  Company Number: 2005UW13644

PATIENT
  Age: 461 Month
  Sex: Male
  Weight: 106.1 kg

DRUGS (3)
  1. TOPROL-XL [Suspect]
     Indication: LONG QT SYNDROME
     Route: 048
  2. CLONAZEPAM [Concomitant]
  3. PREVACID [Concomitant]

REACTIONS (4)
  - CARDIAC ARREST [None]
  - LOSS OF CONSCIOUSNESS [None]
  - PARAESTHESIA [None]
  - PRURITUS [None]
